FAERS Safety Report 18723446 (Version 1)
Quarter: 2021Q1

REPORT INFORMATION
  Report Type: Spontaneous
  Country: US (occurrence: US)
  Receive Date: 20210107
  Receipt Date: 20210107
  Transmission Date: 20210419
  Serious: No
  Sender: FDA-Public Use
  Company Number: None

PATIENT
  Age: 72 Year
  Sex: Male

DRUGS (2)
  1. ERTAPENEM (ERTAPENEM 1GM/VIL INJ) [Suspect]
     Active Substance: ERTAPENEM
     Indication: OSTEOMYELITIS
     Dosage: ?          OTHER ROUTE:IV?
     Route: 042
     Dates: start: 20191113, end: 20191213
  2. VANCOMYCIN (VANCOMYCIN HCL 750MG/VIL INJ) [Suspect]
     Active Substance: VANCOMYCIN HYDROCHLORIDE
     Dosage: ?          OTHER ROUTE:IV?
     Route: 042
     Dates: start: 20191113, end: 20191213

REACTIONS (3)
  - Flushing [None]
  - Rash morbilliform [None]
  - Drug reaction with eosinophilia and systemic symptoms [None]

NARRATIVE: CASE EVENT DATE: 20191213
